FAERS Safety Report 9144826 (Version 1)
Quarter: 2013Q1

REPORT INFORMATION
  Report Type: Report from Study
  Country: DE (occurrence: DE)
  Receive Date: 20130307
  Receipt Date: 20130307
  Transmission Date: 20140127
  Serious: Yes (Hospitalization, Other)
  Sender: FDA-Public Use
  Company Number: DE-AMGEN-DEUCT2013014706

PATIENT
  Age: 12 Year
  Sex: Female
  Weight: 54.7 kg

DRUGS (2)
  1. ETANERCEPT [Suspect]
     Indication: JUVENILE IDIOPATHIC ARTHRITIS
     Dosage: 35 MG, QWK
     Dates: start: 20090205
  2. IBUPROFEN [Concomitant]
     Indication: JUVENILE IDIOPATHIC ARTHRITIS
     Dosage: UNK

REACTIONS (2)
  - Encephalitis [Recovered/Resolved]
  - Varicella [Recovered/Resolved]
